FAERS Safety Report 6135528-X (Version None)
Quarter: 2009Q1

REPORT INFORMATION
  Report Type: 
  Country: None (occurrence: None)
  Receive Date: 20090327
  Receipt Date: 20090324
  Transmission Date: 20090719
  Serious: Yes (Other)
  Sender: FDA-Public Use
  Company Number: B0566512A

PATIENT
  Age: 79 Year
  Sex: Female

DRUGS (1)
  1. ZANTAC [Suspect]
     Route: 065

REACTIONS (3)
  - DEPRESSION [None]
  - DRUG DEPENDENCE [None]
  - GASTRIC DISORDER [None]
